FAERS Safety Report 7393744-3 (Version None)
Quarter: 2011Q1

REPORT INFORMATION
  Report Type: 
  Country: None (occurrence: None)
  Receive Date: 20110331
  Receipt Date: 20110331
  Transmission Date: 20110831
  Serious: No
  Sender: FDA-Public Use
  Company Number: None

PATIENT
  Age: 74 Year
  Sex: Female
  Weight: 68.0396 kg

DRUGS (1)
  1. VESICARE [Suspect]
     Indication: BLADDER DISORDER
     Dosage: 5MG 1 A DAY
     Dates: start: 20100615

REACTIONS (3)
  - SKIN LESION [None]
  - HYPERSENSITIVITY [None]
  - LIP BLISTER [None]
